FAERS Safety Report 5369012-8 (Version None)
Quarter: 2007Q2

REPORT INFORMATION
  Report Type: 
  Country: None (occurrence: None)
  Receive Date: 20070625
  Receipt Date: 20061214
  Transmission Date: 20071010
  Serious: Yes (Hospitalization)
  Sender: FDA-Public Use
  Company Number: US-ASTRAZENECA-2006UW28030

PATIENT
  Age: 55 Year
  Sex: Female

DRUGS (3)
  1. CRESTOR [Suspect]
     Route: 048
  2. OMACOR [Concomitant]
  3. COREG [Concomitant]

REACTIONS (1)
  - RHABDOMYOLYSIS [None]
